FAERS Safety Report 5370930-5 (Version None)
Quarter: 2007Q2

REPORT INFORMATION
  Report Type: 
  Country: None (occurrence: None)
  Receive Date: 20070626
  Receipt Date: 20070614
  Transmission Date: 20071010
  Serious: Yes (Hospitalization)
  Sender: FDA-Public Use
  Company Number: IT-PFIZER INC-2006143743

PATIENT
  Sex: Female
  Weight: 53 kg

DRUGS (6)
  1. VFEND [Suspect]
     Indication: MUCOSAL INFLAMMATION
     Route: 048
     Dates: start: 20061002, end: 20061107
  2. MORPHINE SULFATE [Suspect]
     Dosage: DAILY DOSE:60MG
     Route: 048
     Dates: start: 20061026, end: 20061106
  3. PARIET [Concomitant]
  4. VOLTAREN [Concomitant]
  5. OMEPRAZOLE [Concomitant]
  6. TRITTICO [Concomitant]
     Dosage: TEXT:25 MG/ML , 10 DROPS

REACTIONS (6)
  - CONFUSIONAL STATE [None]
  - DEHYDRATION [None]
  - DYSPHAGIA [None]
  - FEEDING DISORDER [None]
  - HALLUCINATION, VISUAL [None]
  - RENAL FAILURE ACUTE [None]
